FAERS Safety Report 7434547-0 (Version None)
Quarter: 2011Q2

REPORT INFORMATION
  Report Type: 
  Country: None (occurrence: None)
  Receive Date: 20110425
  Receipt Date: 20110418
  Transmission Date: 20111010
  Serious: Yes (Death, Hospitalization)
  Sender: FDA-Public Use
  Company Number: BR-MPIJNJ-2008-03796

PATIENT

DRUGS (8)
  1. SIMVASTATIN [Concomitant]
     Dosage: UNK, UNK
     Route: 048
     Dates: end: 20081002
  2. NEUPOGEN [Concomitant]
     Dosage: UNK
     Route: 058
     Dates: end: 20081002
  3. VELCADE [Suspect]
     Indication: MULTIPLE MYELOMA
     Dosage: 2.5 MG, UNK
     Dates: start: 20080823, end: 20080927
  4. ZOMETA [Concomitant]
     Indication: MULTIPLE MYELOMA
     Dosage: 4 MG, UNK
     Route: 042
     Dates: start: 20080823, end: 20080917
  5. CEFEPIME [Concomitant]
     Dosage: UNK
     Route: 042
     Dates: start: 20080827, end: 20080829
  6. ACETYLSALICYLIC ACID SRT [Concomitant]
     Indication: PLATELET AGGREGATION INHIBITION
     Dosage: UNK, UNK
     Route: 048
     Dates: end: 20081002
  7. DEXAMETHASONE [Concomitant]
     Indication: MULTIPLE MYELOMA
     Dosage: 40 MG, UNK
     Route: 042
     Dates: start: 20080823, end: 20080927
  8. AMIODARONE [Concomitant]
     Dosage: UNK, UNK
     Route: 048
     Dates: end: 20081002

REACTIONS (4)
  - INTESTINAL OBSTRUCTION [None]
  - SEPTIC SHOCK [None]
  - CHEST PAIN [None]
  - CONSTIPATION [None]
